FAERS Safety Report 9508855 (Version 2)
Quarter: 2013Q3

REPORT INFORMATION
  Report Type: Spontaneous
  Country: US (occurrence: US)
  Receive Date: 20130909
  Receipt Date: 20130909
  Transmission Date: 20140515
  Serious: Yes (Disabling)
  Sender: FDA-Public Use
  Company Number: US-BRISTOL-MYERS SQUIBB COMPANY-17399403

PATIENT
  Age: 77 Year
  Sex: Female

DRUGS (3)
  1. ABILIFY [Suspect]
     Indication: DEPRESSION
     Dosage: DOSE: 5 MG AND 2 MG
     Route: 048
     Dates: start: 201202, end: 201206
  2. LEXAPRO [Concomitant]
  3. LAMICTAL [Concomitant]

REACTIONS (3)
  - Extrapyramidal disorder [Recovering/Resolving]
  - Pain in extremity [Recovering/Resolving]
  - Asthenia [Recovering/Resolving]
